FAERS Safety Report 20531196 (Version 1)
Quarter: 2022Q1

REPORT INFORMATION
  Report Type: Spontaneous
  Country: US (occurrence: None)
  Receive Date: 20220228
  Receipt Date: 20220228
  Transmission Date: 20220423
  Serious: No
  Sender: FDA-Public Use
  Company Number: None

PATIENT
  Age: 17 Year
  Sex: Female

DRUGS (1)
  1. HUMIRA [Suspect]
     Active Substance: ADALIMUMAB
     Indication: Crohn^s disease
     Dosage: FREQUENCY : EVERY OTHER WEEK;?
     Route: 058
     Dates: start: 202202, end: 20220228

REACTIONS (5)
  - Vomiting [None]
  - Headache [None]
  - Diarrhoea [None]
  - Frequent bowel movements [None]
  - Condition aggravated [None]

NARRATIVE: CASE EVENT DATE: 20220215
